FAERS Safety Report 22874047 (Version 3)
Quarter: 2025Q1

REPORT INFORMATION
  Report Type: Spontaneous
  Country: US (occurrence: US)
  Receive Date: 20230828
  Receipt Date: 20250124
  Transmission Date: 20250408
  Serious: Yes (Other)
  Sender: ALEXION PHARMACEUTICALS
  Company Number: US-ALXN-A202310723

PATIENT
  Age: 52 Year

DRUGS (1)
  1. STRENSIQ [Suspect]
     Active Substance: ASFOTASE ALFA
     Indication: Hypophosphatasia
     Dosage: 0.63 ML, SIX TIMES/WEEK

REACTIONS (7)
  - Multiple fractures [Recovering/Resolving]
  - Cartilage injury [Recovering/Resolving]
  - Pain [Recovering/Resolving]
  - General physical health deterioration [Recovering/Resolving]
  - Lip swelling [Unknown]
  - Lip blister [Recovering/Resolving]
  - Chapped lips [Recovering/Resolving]
